FAERS Safety Report 5981300-0 (Version None)
Quarter: 2008Q4

REPORT INFORMATION
  Report Type: 
  Country: None (occurrence: None)
  Receive Date: 20081125
  Receipt Date: 20081118
  Transmission Date: 20090506
  Serious: Yes (Hospitalization)
  Sender: FDA-Public Use
  Company Number: WAES 0810USA03812

PATIENT
  Age: 70 Year
  Sex: Male

DRUGS (5)
  1. CAP APREPITANT [Suspect]
     Indication: PROPHYLAXIS OF NAUSEA AND VOMITING
     Dates: start: 20081008, end: 20081010
  2. DEXAMETHASONE [Suspect]
     Indication: PROPHYLAXIS OF NAUSEA AND VOMITING
     Dosage: 12 MG
     Route: 048
     Dates: start: 20081008, end: 20081008
  3. PLACEBO (UNSPECIFIED) [Suspect]
     Indication: PROPHYLAXIS OF NAUSEA AND VOMITING
     Dates: start: 20081008, end: 20081008
  4. ONDANSETRON HCL [Suspect]
     Indication: PROPHYLAXIS OF NAUSEA AND VOMITING
     Route: 042
     Dates: start: 20081008, end: 20081008
  5. TAB BLINDED THERAPY [Suspect]
     Indication: PROPHYLAXIS OF NAUSEA AND VOMITING
     Route: 048
     Dates: start: 20081010, end: 20081011

REACTIONS (2)
  - ABDOMINAL PAIN UPPER [None]
  - FAECALOMA [None]
